FAERS Safety Report 6870329-6 (Version None)
Quarter: 2010Q3

REPORT INFORMATION
  Report Type: 
  Country: None (occurrence: None)
  Receive Date: 20100723
  Receipt Date: 20100714
  Transmission Date: 20110219
  Serious: No
  Sender: FDA-Public Use
  Company Number: US-BIOGENIDEC-2010BI024317

PATIENT
  Sex: Male

DRUGS (2)
  1. TYSABRI [Suspect]
     Indication: MULTIPLE SCLEROSIS
     Route: 042
     Dates: start: 20080729
  2. AMPYRA [Concomitant]
     Dates: start: 20100701

REACTIONS (3)
  - BURNING SENSATION [None]
  - DRUG EFFECT DECREASED [None]
  - URINARY INCONTINENCE [None]
